FAERS Safety Report 6620931-1 (Version None)
Quarter: 2010Q1

REPORT INFORMATION
  Report Type: 
  Country: None (occurrence: None)
  Receive Date: 20100308
  Receipt Date: 20100308
  Transmission Date: 20100710
  Serious: Yes (Life-Threatening)
  Sender: FDA-Public Use
  Company Number: None

PATIENT
  Age: 77 Year
  Sex: Female
  Weight: 47.6277 kg

DRUGS (1)
  1. PROPAFENONE HCL [Suspect]
     Indication: CARDIAC DISORDER
     Dosage: 1 TABLET 3 TIMES DAILY PO
     Route: 048
     Dates: start: 20100302, end: 20100303

REACTIONS (7)
  - ABDOMINAL PAIN UPPER [None]
  - ASTHENIA [None]
  - BLOOD PRESSURE SYSTOLIC INCREASED [None]
  - DIZZINESS [None]
  - HEART RATE DECREASED [None]
  - NAUSEA [None]
  - PRODUCT SUBSTITUTION ISSUE [None]
